FAERS Safety Report 16941009 (Version 1)
Quarter: 2019Q4

REPORT INFORMATION
  Report Type: Spontaneous
  Country: US (occurrence: US)
  Receive Date: 20190829
  Receipt Date: 20190829
  Transmission Date: 20200122
  Serious: No
  Sender: FDA-Public Use
  Company Number: None

PATIENT
  Age: 72 Year
  Sex: Female

DRUGS (2)
  1. EXEMESTANE. [Concomitant]
     Active Substance: EXEMESTANE
  2. VERZENIO [Suspect]
     Active Substance: ABEMACICLIB
     Route: 048
     Dates: start: 201905

REACTIONS (6)
  - Confusional state [None]
  - Wheezing [None]
  - Fatigue [None]
  - Dizziness [None]
  - Amnesia [None]
  - Arthralgia [None]

NARRATIVE: CASE EVENT DATE: 20190528
